FAERS Safety Report 13332056 (Version 2)
Quarter: 2017Q2

REPORT INFORMATION
  Report Type: Spontaneous
  Country: US (occurrence: US)
  Receive Date: 20170314
  Receipt Date: 20170531
  Transmission Date: 20170830
  Serious: No
  Sender: FDA-Public Use
  Company Number: US-JNJFOC-20170215036

PATIENT
  Age: 75 Year
  Sex: Male
  Weight: 80.74 kg

DRUGS (2)
  1. TYLENOL EXTRA STRENGTH [Suspect]
     Active Substance: ACETAMINOPHEN
     Indication: ARTHRALGIA
     Dosage: DOSE: 1 CAPLET, SOMETIMES 2, BEDTIME ONLY
     Route: 048
  2. PRADAXA [Concomitant]
     Active Substance: DABIGATRAN ETEXILATE MESYLATE
     Indication: ANTICOAGULANT THERAPY
     Route: 065

REACTIONS (3)
  - Product use complaint [Unknown]
  - Pain in extremity [Recovered/Resolved]
  - Incorrect dose administered [Unknown]
